FAERS Safety Report 8762347 (Version 3)
Quarter: 2013Q1

REPORT INFORMATION
  Report Type: Spontaneous
  Country: US (occurrence: US)
  Receive Date: 20120830
  Receipt Date: 20130103
  Transmission Date: 20140127
  Serious: Yes (Other)
  Sender: FDA-Public Use
  Company Number: US-BAYER-2012-087844

PATIENT
  Age: 32 Year
  Sex: Female
  Weight: 85.26 kg

DRUGS (2)
  1. MIRENA [Suspect]
     Indication: CONTRACEPTION
     Dosage: 20 MCG/24HR, CONT
     Route: 015
     Dates: start: 20120731, end: 20120820
  2. VITAMIN D [Concomitant]
     Dosage: 50000 IU, UNK

REACTIONS (5)
  - Pregnancy with contraceptive device [None]
  - Abdominal pain [None]
  - Drug ineffective [None]
  - Gestational diabetes [None]
  - Cervical incompetence [None]
